FAERS Safety Report 10450170 (Version 1)
Quarter: 2014Q3

REPORT INFORMATION
  Report Type: Spontaneous
  Country: US (occurrence: US)
  Receive Date: 20140912
  Receipt Date: 20140912
  Transmission Date: 20150326
  Serious: No
  Sender: FDA-Public Use
  Company Number: US-PFIZER INC-2014251811

PATIENT
  Sex: Male

DRUGS (1)
  1. ADVIL [Suspect]
     Active Substance: IBUPROFEN
     Dosage: UNK

REACTIONS (7)
  - Dyspnoea [Unknown]
  - Insomnia [Unknown]
  - Hypersensitivity [Unknown]
  - Oropharyngeal pain [Unknown]
  - Throat tightness [Unknown]
  - Pruritus [Unknown]
  - Product quality issue [Unknown]
